FAERS Safety Report 5758269-7 (Version None)
Quarter: 2008Q2

REPORT INFORMATION
  Report Type: 
  Country: None (occurrence: None)
  Receive Date: 20080604
  Receipt Date: 20080527
  Transmission Date: 20081010
  Serious: Yes (Hospitalization)
  Sender: FDA-Public Use
  Company Number: GB-AMGEN-US283110

PATIENT
  Age: 68 Year
  Sex: Female
  Weight: 58 kg

DRUGS (8)
  1. ENBREL [Suspect]
     Indication: DRUG USE FOR UNKNOWN INDICATION
     Dosage: 50MG, FREQUENCY UNKNOWN
     Route: 065
     Dates: start: 20040414
  2. FOLIC ACID [Concomitant]
     Dosage: UNKNOWN
     Route: 065
  3. TEMAZEPAM [Concomitant]
     Dosage: UNKNOWN
     Route: 065
  4. METHOTREXATE [Concomitant]
     Dosage: UNKNOWN
     Route: 065
  5. NABUMETONE [Concomitant]
     Dosage: UNKNOWN
     Route: 065
  6. OMEPRAZOLE [Concomitant]
     Dosage: UNKNOWN
     Route: 065
  7. CO-PROXAMOL [Concomitant]
     Dosage: UNKNOWN
     Route: 065
  8. HYDROXYCHLOROQUINE SULFATE [Concomitant]
     Dosage: UNKNOWN
     Route: 065

REACTIONS (1)
  - GLOBAL AMNESIA [None]
